FAERS Safety Report 5600813-4 (Version None)
Quarter: 2008Q1

REPORT INFORMATION
  Report Type: 
  Country: None (occurrence: None)
  Receive Date: 20080123
  Receipt Date: 20080111
  Transmission Date: 20080703
  Serious: Yes (Hospitalization, Other)
  Sender: FDA-Public Use
  Company Number: US-PFIZER INC-2008005005

PATIENT

DRUGS (1)
  1. CHANTIX [Suspect]

REACTIONS (10)
  - ABNORMAL DREAMS [None]
  - CEREBROVASCULAR ACCIDENT [None]
  - EUPHORIC MOOD [None]
  - FLIGHT OF IDEAS [None]
  - INSOMNIA [None]
  - MANIA [None]
  - NIGHTMARE [None]
  - PSYCHOMOTOR HYPERACTIVITY [None]
  - SOMNAMBULISM [None]
  - SUICIDAL IDEATION [None]
